FAERS Safety Report 4914195-4 (Version None)
Quarter: 2006Q1

REPORT INFORMATION
  Report Type: 
  Country: None (occurrence: None)
  Receive Date: 20060213
  Receipt Date: 20060203
  Transmission Date: 20060701
  Serious: Yes (Other)
  Sender: FDA-Public Use
  Company Number: 2006-02-0076

PATIENT
  Age: 71 Year
  Sex: Male

DRUGS (2)
  1. CELESTONE [Suspect]
     Indication: PHARYNGEAL POLYP
     Dosage: INHALATION
     Route: 055
     Dates: start: 20060101
  2. FLECAINIDE ACETATE [Concomitant]

REACTIONS (1)
  - ARRHYTHMIA [None]
